FAERS Safety Report 4532084-4 (Version None)
Quarter: 2004Q4

REPORT INFORMATION
  Report Type: 
  Country: None (occurrence: None)
  Receive Date: 20041217
  Receipt Date: 20041207
  Transmission Date: 20050328
  Serious: Yes (Death, Life-Threatening, Disabling)
  Sender: FDA-Public Use
  Company Number: 167-20785-04120176

PATIENT
  Age: 67 Year
  Sex: Male

DRUGS (11)
  1. THALIDOMIDE - PHARMION (THALIDOMIDE) (100 MILLIOGRAM, CAPSULES) [Suspect]
     Indication: SMALL CELL LUNG CANCER STAGE UNSPECIFIED
     Dosage: 100 MG, DAILY, ORAL
     Route: 048
     Dates: start: 20041002, end: 20041127
  2. CARBOPLATIN [Suspect]
     Indication: SMALL CELL LUNG CANCER STAGE UNSPECIFIED
     Dosage: 720 MG, DAILY, INTRAVENOUS
     Route: 042
     Dates: start: 20040924, end: 20041126
  3. ETOPOSIDE [Suspect]
     Indication: SMALL CELL LUNG CANCER STAGE UNSPECIFIED
     Dosage: SEE IMAGE
     Route: 042
     Dates: start: 20040924, end: 20041126
  4. ETOPOSIDE [Suspect]
     Indication: SMALL CELL LUNG CANCER STAGE UNSPECIFIED
     Dosage: SEE IMAGE
     Route: 042
     Dates: start: 20040924, end: 20041126
  5. SALBUTAMOL (SALBUTAMOL) [Concomitant]
  6. RAMIPRIL [Concomitant]
  7. ATORVASTATIN (ATORVASTATIN) [Concomitant]
  8. AMLODIPINE [Concomitant]
  9. ASPIRIN [Concomitant]
  10. DEXAMETHASONE [Concomitant]
  11. METOCLOPRAMIDE [Concomitant]

REACTIONS (16)
  - BLOOD ALBUMIN DECREASED [None]
  - BLOOD ALKALINE PHOSPHATASE INCREASED [None]
  - BLOOD POTASSIUM INCREASED [None]
  - CIRCULATORY COLLAPSE [None]
  - HAEMOGLOBIN DECREASED [None]
  - ILEUS [None]
  - INTESTINAL INFARCTION [None]
  - LARGE INTESTINAL OBSTRUCTION [None]
  - MALIGNANT NEOPLASM PROGRESSION [None]
  - NEUTROPHIL COUNT INCREASED [None]
  - PARALYSIS [None]
  - PLATELET COUNT INCREASED [None]
  - RENAL FAILURE [None]
  - SMALL CELL LUNG CANCER STAGE UNSPECIFIED [None]
  - SPINAL CORD COMPRESSION [None]
  - WHITE BLOOD CELL COUNT INCREASED [None]
